FAERS Safety Report 22641689 (Version 1)
Quarter: 2023Q2

REPORT INFORMATION
  Report Type: Spontaneous
  Country: FR (occurrence: FR)
  Receive Date: 20230626
  Receipt Date: 20230626
  Transmission Date: 20230721
  Serious: Yes (Life-Threatening)
  Sender: FDA-Public Use
  Company Number: None

PATIENT
  Age: 72 Year
  Sex: Male

DRUGS (6)
  1. PROPOFOL [Suspect]
     Active Substance: PROPOFOL
     Indication: Induction of anaesthesia
     Dosage: ROA-20045000
     Route: 042
     Dates: start: 20230516, end: 20230516
  2. ROCURONIUM BROMIDE [Suspect]
     Active Substance: ROCURONIUM BROMIDE
     Indication: Induction of anaesthesia
     Dosage: ROA-20045000
     Route: 042
     Dates: start: 20230516, end: 20230516
  3. KETAMINE [Suspect]
     Active Substance: KETAMINE
     Indication: Induction of anaesthesia
     Dosage: ROA-20045000
     Route: 042
     Dates: start: 20230516, end: 20230516
  4. DROPERIDOL [Suspect]
     Active Substance: DROPERIDOL
     Indication: Prophylaxis of nausea and vomiting
     Dosage: ROA-20045000
     Route: 042
     Dates: start: 20230516, end: 20230516
  5. DEXAMETHASONE [Suspect]
     Active Substance: DEXAMETHASONE
     Indication: Induction of anaesthesia
     Dosage: ROA-20045000
     Route: 042
     Dates: start: 20230516, end: 20230516
  6. SUFENTANIL [Suspect]
     Active Substance: SUFENTANIL
     Indication: Induction of anaesthesia
     Dosage: ROA-20045000
     Route: 042
     Dates: start: 20230516, end: 20230516

REACTIONS (1)
  - Anaphylactic shock [Recovered/Resolved]

NARRATIVE: CASE EVENT DATE: 20230516
